FAERS Safety Report 7112411-4 (Version None)
Quarter: 2010Q4

REPORT INFORMATION
  Report Type: 
  Country: None (occurrence: None)
  Receive Date: 20101119
  Receipt Date: 20101025
  Transmission Date: 20110411
  Serious: No
  Sender: FDA-Public Use
  Company Number: A0888651A

PATIENT
  Age: 52 Year
  Sex: Male

DRUGS (5)
  1. AVODART [Suspect]
     Indication: BENIGN PROSTATIC HYPERPLASIA
     Dosage: .5MG PER DAY
     Route: 048
     Dates: start: 20100301
  2. BENICAR [Concomitant]
  3. COQ10 [Concomitant]
  4. VITAMIN D [Concomitant]
  5. ENZYME [Concomitant]

REACTIONS (1)
  - SEMEN VOLUME DECREASED [None]
